FAERS Safety Report 6118302-X (Version None)
Quarter: 2009Q1

REPORT INFORMATION
  Report Type: 
  Country: None (occurrence: None)
  Receive Date: 20090314
  Receipt Date: 20090211
  Transmission Date: 20090719
  Serious: No
  Sender: FDA-Public Use
  Company Number: US-ABBOTT-09P-163-0503404-00

PATIENT
  Sex: Female
  Weight: 63.56 kg

DRUGS (5)
  1. HUMIRA [Suspect]
     Indication: RHEUMATOID ARTHRITIS
     Route: 058
     Dates: start: 20030101, end: 20080601
  2. HUMIRA [Suspect]
     Dates: start: 20080601
  3. WELLBUTRIN [Concomitant]
     Indication: DEPRESSION
     Dosage: UNKNOWN
  4. LORAZEPAM [Concomitant]
     Indication: ANXIETY
  5. IMITREX [Concomitant]
     Indication: MIGRAINE
     Dosage: UNKNOWN

REACTIONS (7)
  - BACK PAIN [None]
  - CHEST DISCOMFORT [None]
  - DRUG INEFFECTIVE [None]
  - EAR DISCOMFORT [None]
  - PAIN [None]
  - RESTLESS LEGS SYNDROME [None]
  - TOOTHACHE [None]
